FAERS Safety Report 9558097 (Version 1)
Quarter: 2013Q3

REPORT INFORMATION
  Report Type: Spontaneous
  Country: US (occurrence: None)
  Receive Date: 20130724
  Receipt Date: 20130724
  Transmission Date: 20140515
  Serious: No
  Sender: FDA-Public Use
  Company Number: PHEH2013US007323

PATIENT
  Age: 44 Year
  Sex: Male
  Weight: 95.2 kg

DRUGS (6)
  1. GILENYA [Suspect]
     Indication: MULTIPLE SCLEROSIS
     Route: 048
  2. ADDERALL [Suspect]
  3. BACLOFEN [Suspect]
  4. CELEXA (CITALOPRAM HYDROBROMIDE) [Suspect]
  5. DEXMETHYLPHENIDATE [Suspect]
  6. ONE A DAY MENS [Suspect]

REACTIONS (2)
  - Fatigue [None]
  - Musculoskeletal stiffness [None]
